FAERS Safety Report 4925960-1 (Version None)
Quarter: 2006Q1

REPORT INFORMATION
  Report Type: 
  Country: None (occurrence: None)
  Receive Date: 20060224
  Receipt Date: 20060224
  Transmission Date: 20060701
  Serious: Yes (Life-Threatening, Hospitalization)
  Sender: FDA-Public Use
  Company Number: None

PATIENT
  Age: 64 Year
  Sex: Male
  Weight: 110 kg

DRUGS (15)
  1. BEVACIZUMAB IV [Suspect]
     Indication: RECTAL CANCER
     Dosage: 5MG/KG = 550 MG
     Dates: start: 20060213
  2. OXALIPLATIN IV [Suspect]
     Indication: RECTAL CANCER
     Dosage: 85MG/M2 = 196 MG
     Dates: start: 20060213
  3. LEUKOVORIN IV [Suspect]
     Indication: RECTAL CANCER
     Dosage: 400MG/M2 = 920MG
     Dates: start: 20060213
  4. FLUOROURACIL [Suspect]
     Indication: RECTAL CANCER
     Dosage: 400MG/M2 = 920MG
     Dates: start: 20060213
  5. FLUOROURACIL [Suspect]
     Indication: RECTAL CANCER
     Dosage: 2400MG/M2 OVER 46 HOURS = 5520MG
     Dates: start: 20060215, end: 20060215
  6. TYLENOL (CAPLET) [Concomitant]
  7. ZOFRAN [Concomitant]
  8. DECADRON SRC [Concomitant]
  9. COMPAZINE [Concomitant]
  10. ALTACE [Concomitant]
  11. ATENOLOL [Concomitant]
  12. BENADRYL [Concomitant]
  13. EPINEPHRINE [Concomitant]
  14. LIDOCAINE [Concomitant]
  15. ZOFRAN [Concomitant]

REACTIONS (8)
  - ARRHYTHMIA [None]
  - CARDIAC ARREST [None]
  - CHEST PAIN [None]
  - DYSARTHRIA [None]
  - NAUSEA [None]
  - SPEECH DISORDER [None]
  - TREMOR [None]
  - VENTRICULAR FIBRILLATION [None]
